FAERS Safety Report 16884209 (Version 1)
Quarter: 2019Q4

REPORT INFORMATION
  Report Type: Spontaneous
  Country: ES (occurrence: ES)
  Receive Date: 20191004
  Receipt Date: 20191004
  Transmission Date: 20200122
  Serious: Yes (Other)
  Sender: FDA-Public Use
  Company Number: ES-ACCORD-156264

PATIENT
  Age: 56 Year
  Sex: Male

DRUGS (1)
  1. CISPLATIN. [Suspect]
     Active Substance: CISPLATIN
     Indication: LUNG ADENOCARCINOMA
     Dosage: 155 MG
     Route: 042
     Dates: start: 20190919, end: 20190919

REACTIONS (4)
  - Pruritus [Recovered/Resolved]
  - Dermatitis allergic [Recovered/Resolved]
  - Face oedema [Recovered/Resolved]
  - Hypotension [Recovered/Resolved]

NARRATIVE: CASE EVENT DATE: 20190919
